FAERS Safety Report 5702134-8 (Version None)
Quarter: 2008Q2

REPORT INFORMATION
  Report Type: 
  Country: None (occurrence: None)
  Receive Date: 20080411
  Receipt Date: 20080402
  Transmission Date: 20081010
  Serious: Yes (Other)
  Sender: FDA-Public Use
  Company Number: US-ROCHE-557569

PATIENT

DRUGS (3)
  1. PEGASYS [Suspect]
     Route: 065
  2. RIBAVIRIN [Suspect]
     Route: 065
  3. UNSPECIFIED MEDICATIONS [Concomitant]
     Dosage: REPORTED AS ^PSYCH MEDS.^

REACTIONS (1)
  - GRAND MAL CONVULSION [None]
